FAERS Safety Report 10897754 (Version 2)
Quarter: 2015Q2

REPORT INFORMATION
  Report Type: Spontaneous
  Country: US (occurrence: US)
  Receive Date: 20150309
  Receipt Date: 20150422
  Transmission Date: 20150821
  Serious: No
  Sender: FDA-Public Use
  Company Number: US-PFIZER INC-2015078958

PATIENT
  Age: 69 Year
  Sex: Female
  Weight: 43 kg

DRUGS (2)
  1. INLYTA [Suspect]
     Active Substance: AXITINIB
     Dosage: 5 X 1 MG, 2X/DAY
     Route: 048
     Dates: start: 201502, end: 20150226
  2. INLYTA [Suspect]
     Active Substance: AXITINIB
     Indication: RENAL CELL CARCINOMA
     Dosage: 1 MG, 2X/DAY
     Route: 048
     Dates: start: 20150216, end: 201502

REACTIONS (2)
  - Asthenia [Unknown]
  - Decreased appetite [Recovering/Resolving]

NARRATIVE: CASE EVENT DATE: 20150223
